FAERS Safety Report 21872299 (Version 2)
Quarter: 2023Q2

REPORT INFORMATION
  Report Type: Spontaneous
  Country: US (occurrence: US)
  Receive Date: 20230117
  Receipt Date: 20230512
  Transmission Date: 20230722
  Serious: No
  Sender: FDA-Public Use
  Company Number: US-PFIZER INC-2019276772

PATIENT
  Age: 83 Year
  Sex: Female

DRUGS (3)
  1. SUTENT [Suspect]
     Active Substance: SUNITINIB MALATE
     Indication: Gastrointestinal stromal tumour
     Dosage: 12.5 MG, CYCLIC (4 WKS ON AND 2 WKS OFF)
     Route: 048
  2. SUTENT [Suspect]
     Active Substance: SUNITINIB MALATE
     Indication: Metastases to abdominal cavity
     Dosage: 25 MG, CYCLIC (2 CAPS P.O. Q DAY, 4 WKS ON AND 2 WKS OFF)
     Route: 048
  3. SUTENT [Suspect]
     Active Substance: SUNITINIB MALATE
     Indication: Anaemia

REACTIONS (3)
  - Hypoacusis [Unknown]
  - Neoplasm progression [Unknown]
  - Off label use [Unknown]
